FAERS Safety Report 24722518 (Version 1)
Quarter: 2024Q4

REPORT INFORMATION
  Report Type: Spontaneous
  Country: CN (occurrence: CN)
  Receive Date: 20241211
  Receipt Date: 20241211
  Transmission Date: 20250115
  Serious: Yes (Other)
  Sender: PFIZER
  Company Number: CN-PFIZER INC-PV202400159494

PATIENT
  Age: 38 Year
  Sex: Female
  Weight: 58 kg

DRUGS (1)
  1. HEMABATE [Suspect]
     Active Substance: CARBOPROST TROMETHAMINE
     Indication: Symptomatic treatment
     Dosage: 0.25 MG, 1X/DAY
     Route: 015
     Dates: start: 20241008, end: 20241008

REACTIONS (5)
  - Vomiting [Recovering/Resolving]
  - Nausea [Recovering/Resolving]
  - Chest discomfort [Recovering/Resolving]
  - Blood pressure systolic increased [Recovered/Resolved]
  - Off label use [Unknown]

NARRATIVE: CASE EVENT DATE: 20241008
